FAERS Safety Report 5407844-8 (Version None)
Quarter: 2007Q3

REPORT INFORMATION
  Report Type: 
  Country: None (occurrence: None)
  Receive Date: 20070803
  Receipt Date: 20070726
  Transmission Date: 20080115
  Serious: Yes (Other)
  Sender: FDA-Public Use
  Company Number: MEDI-0005908

PATIENT
  Age: 69 Year
  Sex: Male

DRUGS (1)
  1. ETHYOL [Suspect]
     Dosage: 500 MG, SUBCUTANEOUS
     Route: 058

REACTIONS (4)
  - BLOOD PRESSURE IMMEASURABLE [None]
  - DIZZINESS [None]
  - HYPERHIDROSIS [None]
  - LOSS OF CONSCIOUSNESS [None]
